FAERS Safety Report 12762301 (Version 1)
Quarter: 2016Q3

REPORT INFORMATION
  Report Type: Spontaneous
  Country: SE (occurrence: SE)
  Receive Date: 20160920
  Receipt Date: 20160920
  Transmission Date: 20161109
  Serious: Yes (Congenital Anomaly)
  Sender: FDA-Public Use
  Company Number: SE-ABBVIE-06P-150-0332223-00

PATIENT
  Sex: Male

DRUGS (1)
  1. ERGENYL [Suspect]
     Active Substance: VALPROIC ACID
     Indication: MATERNAL EXPOSURE TIMING UNSPECIFIED
     Route: 064

REACTIONS (2)
  - Foetal exposure during pregnancy [Unknown]
  - Autism [Not Recovered/Not Resolved]

NARRATIVE: CASE EVENT DATE: 20010206
